FAERS Safety Report 9690228 (Version 2)
Quarter: 2013Q4

REPORT INFORMATION
  Report Type: Spontaneous
  Country: US (occurrence: US)
  Receive Date: 20131115
  Receipt Date: 20131210
  Transmission Date: 20140711
  Serious: Yes (Death)
  Sender: FDA-Public Use
  Company Number: US-JNJFOC-20131107320

PATIENT
  Sex: 0

DRUGS (14)
  1. INFLIXIMAB, RECOMBINANT [Suspect]
     Indication: CROHN^S DISEASE
     Dosage: MEAN CUMULATIVE DOSE: 41 MG/KG IN 7 PATIENTS??MEAN DURATION OF USE: 1.8 YEARS IN 12 PATIENTS
     Route: 042
  2. ADALIMUMAB [Suspect]
     Indication: CROHN^S DISEASE
     Dosage: MEAN CUMULATIVE DOSE: 920 MG IN 2 PATIENTS??MEAN DURATION OF USE: 1.5 YEARS IN 2 PATIENTS
     Route: 065
  3. 6-MERCAPTOPURINE [Suspect]
     Indication: CROHN^S DISEASE
     Dosage: MEAN CUMULATIVE DOSE: 94,508 MG IN 4 PATIENTS??MEAN DURATION OF USE: 4.8 YEARS IN 10 PATIENTS
     Route: 065
  4. AZATHIOPRINE [Suspect]
     Indication: CROHN^S DISEASE
     Dosage: MEAN CUMULATIVE DOSE: 192,108 MG IN 3 PATIENTS??MEAN DURATION OF USE: 5.8 YEARS IN 17 PATIENTS
     Route: 065
  5. NATALIZUMAB [Suspect]
     Indication: CROHN^S DISEASE
     Dosage: MEAN NUMBER OF INFUSIONS: 3
     Route: 065
  6. CYCLOSPORINE [Suspect]
     Indication: PRODUCT USED FOR UNKNOWN INDICATION
     Route: 065
  7. BALSALAZIDE [Concomitant]
     Route: 065
  8. MESALAMINE [Concomitant]
     Route: 065
  9. SULFASALAZINE [Concomitant]
     Route: 065
  10. BUDESONIDE [Concomitant]
     Route: 065
  11. HYDROCORTISONE [Concomitant]
     Route: 065
  12. PREDNISONE [Concomitant]
     Route: 065
  13. PREDNISOLONE [Concomitant]
     Route: 065
  14. CORTICOSTEROID [Concomitant]
     Route: 065

REACTIONS (1)
  - Hepatosplenic T-cell lymphoma [Fatal]
